FAERS Safety Report 7527373-5 (Version None)
Quarter: 2011Q2

REPORT INFORMATION
  Report Type: 
  Country: None (occurrence: None)
  Receive Date: 20110512
  Receipt Date: 20110411
  Transmission Date: 20111010
  Serious: Yes (Hospitalization)
  Sender: FDA-Public Use
  Company Number: 1000018595

PATIENT
  Age: 41 Year
  Sex: Female

DRUGS (22)
  1. ASPIRIN [Concomitant]
  2. POLYETHYLENE GLYCOL (POLYETHYLENE GLYCOL) (POLYETHYLENE GLYCOL) [Concomitant]
  3. GLUCAGON (GLUCAGON) (GLUCAGON) [Concomitant]
  4. CARAFATE (SUCRALFATE) (1 GRAM) (SUCRALFATE) [Concomitant]
  5. TOPAMAX (TOPIRAMATE) (TOPIRAMATE) [Concomitant]
  6. ZESTRIL [Concomitant]
  7. VITAMIN E (VITAMIN E) (VITAMIN E) [Concomitant]
  8. HUMULIN R (INSULIN HUMAN) (INSULIN HUMAN) [Concomitant]
  9. MULTIVITAMINS (MULTIVITAMINS) (MULTIVITAMINS) [Concomitant]
  10. CALTRATE D (CALCIUM CARBONATE, VITAMIN D) (400 NITERNATIONAL UNITS THO [Concomitant]
  11. PHENERGAN (PROMETHAZINE) (PROMETHAZINE) [Concomitant]
  12. SAVELLA [Suspect]
     Indication: FIBROMYALGIA
     Dosage: 12.5 MG (12.5 MG,1 IN 1 D),ORAL
     Route: 048
     Dates: start: 20110107, end: 20110107
  13. LANTUS (INSULIN GLARGINE) (INSULIN GLARGINE) [Concomitant]
  14. BUTALBITAL (BUTALBITAL) (CAPSULES) (BUTALBITAL) [Concomitant]
  15. GARLIC (GARLIC) (GARLIC) [Concomitant]
  16. SOMA (CARISOPRODOL) (CARISOPRODOL) [Concomitant]
  17. TRAMADOL HYDROCHLORIDE [Suspect]
     Indication: FIBROMYALGIA
     Dosage: 200 MG (50 MG,4 IN 1 D),ORAL ; 200 MG (50 MG,4 IN 1 D)
     Route: 048
     Dates: end: 20110108
  18. TRAMADOL HYDROCHLORIDE [Suspect]
     Indication: FIBROMYALGIA
     Dosage: 200 MG (50 MG,4 IN 1 D),ORAL ; 200 MG (50 MG,4 IN 1 D)
     Route: 048
     Dates: start: 20110110
  19. OMEPRAZOLE (OMEPRAZOLE) (40 MILLIGRAM) (OMEPRAZOLE) [Concomitant]
  20. ALBUTEROL (ALBUTEROL) (90 MICROGRAM, INHALANT) (ALBUTEROL) [Concomitant]
  21. LASIX [Concomitant]
  22. SOYBEAN (SOYBEAN) (TABLETS) (SOYBEAN) [Concomitant]

REACTIONS (3)
  - SEROTONIN SYNDROME [None]
  - RHABDOMYOLYSIS [None]
  - HYPOGLYCAEMIA [None]
